FAERS Safety Report 8621540-5 (Version None)
Quarter: 2012Q3

REPORT INFORMATION
  Report Type: 
  Country: None (occurrence: None)
  Receive Date: 20120824
  Receipt Date: 20120822
  Transmission Date: 20120928
  Serious: Yes (Death)
  Sender: FDA-Public Use
  Company Number: US-009507513-1208USA006746

PATIENT

DRUGS (16)
  1. CYANOCOBALAMIN [Concomitant]
     Dosage: 1 NG, QD
  2. PYRIDOXINE HCL [Concomitant]
     Dosage: 50 MG, BID
  3. ZOFRAN [Concomitant]
     Dosage: UNK, PRN
  4. FOSAMAX [Suspect]
     Indication: OSTEOPOROSIS
     Route: 048
  5. VIACTIV SOFT CALCIUM CHEWS [Concomitant]
     Dosage: UNK, BID
  6. GUAIFENESIN [Concomitant]
     Indication: COUGH
     Dosage: UNK, PRN
  7. OXYCODONE HCL [Concomitant]
     Indication: PAIN
     Dosage: 10-20 MG Q 3-4 H PRN
  8. SUDAFED 12 HOUR [Concomitant]
     Dosage: UNK, PRN
  9. TUSSIONEX (BROMHEXINE HYDROCHLORIDE) [Concomitant]
     Indication: COUGH
     Dosage: UNK, PRN
  10. TYLENOL [Concomitant]
     Dosage: 500 MG, PRN
  11. CHLORASEPTIC SPRAY + GARGLE [Concomitant]
     Dosage: UNK, PRN
  12. SODIUM CHLORIDE [Concomitant]
     Dosage: SALINE NASAL SPRAY
  13. SENOKOT (SENNOSIDES) [Concomitant]
     Dosage: UNK, PRN
  14. KLONOPIN [Concomitant]
     Dosage: 5 MG, HS
  15. AMBIEN [Concomitant]
     Dosage: 5 MG, HS
  16. OXYCONTIN [Concomitant]
     Dosage: 10 MG, Q12H

REACTIONS (4)
  - NON-SMALL CELL LUNG CANCER [None]
  - DYSPEPSIA [None]
  - DEEP VEIN THROMBOSIS [None]
  - DRUG INTOLERANCE [None]
